FAERS Safety Report 25968863 (Version 1)
Quarter: 2025Q4

REPORT INFORMATION
  Report Type: Spontaneous
  Country: JP (occurrence: JP)
  Receive Date: 20251028
  Receipt Date: 20251028
  Transmission Date: 20260118
  Serious: Yes (Death)
  Sender: SHIONOGI
  Company Number: JP-shionogi-202500010823

PATIENT
  Age: 9 Decade
  Sex: Male

DRUGS (1)
  1. CEFIDEROCOL [Suspect]
     Active Substance: CEFIDEROCOL
     Indication: Bacterial infection
     Route: 041
     Dates: start: 20251007, end: 20251007

REACTIONS (1)
  - Death [Fatal]

NARRATIVE: CASE EVENT DATE: 20251008
